FAERS Safety Report 9119742 (Version 2)
Quarter: 2013Q2

REPORT INFORMATION
  Report Type: Spontaneous
  Country: FR (occurrence: FR)
  Receive Date: 20130226
  Receipt Date: 20130405
  Transmission Date: 20140414
  Serious: Yes (Hospitalization, Other)
  Sender: FDA-Public Use
  Company Number: FR-PFIZER INC-2013062308

PATIENT
  Age: 44 Year
  Sex: Male

DRUGS (9)
  1. ARACYTINE [Suspect]
     Indication: LYMPHOMA
     Dosage: 80 MG (TOTAL DOSE)
     Route: 037
     Dates: start: 20121015, end: 20121022
  2. VINCRISTINE SULFATE [Suspect]
     Indication: LYMPHOMA
     Dosage: 6 MG (TOTAL DOSE)
     Route: 042
     Dates: start: 20121012, end: 20121029
  3. ENDOXAN [Suspect]
     Indication: LYMPHOMA
     Dosage: 3000 MG (TOTAL DOSE)
     Route: 042
     Dates: start: 20121012, end: 20121029
  4. KIDROLASE [Suspect]
     Indication: LYMPHOMA
     Dosage: 36 000 IU (TOTAL DOSE)
     Route: 042
     Dates: start: 20121022, end: 20121029
  5. METHOTREXATE TEVA [Suspect]
     Indication: LYMPHOMA
     Dosage: 45 MG (TOTAL DOSE)
     Route: 037
     Dates: start: 20121008, end: 20121022
  6. METHYLPREDNISOLONE [Suspect]
     Indication: LYMPHOMA
     Dosage: 80 MG (TOTAL DOSE)
     Route: 037
     Dates: start: 20121015, end: 20121022
  7. CERUBIDINE [Suspect]
     Indication: LYMPHOMA
     Dosage: 300 MG (TOTAL DOSE)
     Route: 042
     Dates: start: 20121016, end: 20121022
  8. ACUPAN [Concomitant]
     Dosage: UNK
  9. TOPALGIC [Concomitant]
     Dosage: UNK

REACTIONS (4)
  - Cerebral venous thrombosis [Recovering/Resolving]
  - Headache [Recovering/Resolving]
  - Venous thrombosis limb [Unknown]
  - Paraesthesia [Unknown]
